FAERS Safety Report 25278838 (Version 1)
Quarter: 2025Q2

REPORT INFORMATION
  Report Type: Spontaneous
  Country: CA (occurrence: CA)
  Receive Date: 20250507
  Receipt Date: 20250507
  Transmission Date: 20250716
  Serious: Yes (Death, Life-Threatening)
  Sender: PFIZER
  Company Number: CA-PFIZER INC-202500094479

PATIENT
  Age: 72 Year
  Sex: Female

DRUGS (1)
  1. HEPARIN SODIUM [Suspect]
     Active Substance: HEPARIN SODIUM

REACTIONS (5)
  - Cerebral microembolism [Fatal]
  - Haemorrhage [Fatal]
  - Septic shock [Fatal]
  - Thrombocytopenia [Fatal]
  - Thrombosis [Fatal]
